FAERS Safety Report 7141910-4 (Version None)
Quarter: 2010Q4

REPORT INFORMATION
  Report Type: 
  Country: None (occurrence: None)
  Receive Date: 20101117
  Receipt Date: 20100728
  Transmission Date: 20110411
  Serious: No
  Sender: FDA-Public Use
  Company Number: WAES 1007USA03783

PATIENT
  Age: 35 Year
  Sex: Female

DRUGS (6)
  1. ISENTRESS [Suspect]
     Indication: HIV INFECTION
     Dosage: 400 MG/Q12H/PO
     Route: 048
     Dates: start: 20091109
  2. NAPROX [Concomitant]
  3. REMERON [Concomitant]
  4. SINGULAIR [Concomitant]
  5. SULFAMETHOXAZOLE (+) TRIMETHOPRI [Concomitant]
  6. EPZICOM [Concomitant]

REACTIONS (2)
  - DRUG INEFFECTIVE [None]
  - T-LYMPHOCYTE COUNT DECREASED [None]
